FAERS Safety Report 17725563 (Version 1)
Quarter: 2020Q2

REPORT INFORMATION
  Report Type: Spontaneous
  Country: US (occurrence: US)
  Receive Date: 20200429
  Receipt Date: 20200429
  Transmission Date: 20200714
  Serious: No
  Sender: FDA-Public Use
  Company Number: US-HORIZON-VIM-0050-2020

PATIENT
  Age: 69 Year
  Sex: Female

DRUGS (6)
  1. VITAMIN B12 [Concomitant]
     Active Substance: CYANOCOBALAMIN
  2. TYLENOL [Concomitant]
     Active Substance: ACETAMINOPHEN
  3. METOPROLOL. [Concomitant]
     Active Substance: METOPROLOL
  4. LANOXIN [Concomitant]
     Active Substance: DIGOXIN
  5. VIMOVO [Suspect]
     Active Substance: ESOMEPRAZOLE MAGNESIUM\NAPROXEN
     Indication: ARTHRITIS
     Dosage: 1 TAB A DAY
     Dates: start: 201207
  6. ZYRTEC [Concomitant]
     Active Substance: CETIRIZINE HYDROCHLORIDE

REACTIONS (2)
  - Product use issue [Not Recovered/Not Resolved]
  - Skin exfoliation [Not Recovered/Not Resolved]

NARRATIVE: CASE EVENT DATE: 201910
